FAERS Safety Report 6094522-8 (Version None)
Quarter: 2009Q1

REPORT INFORMATION
  Report Type: 
  Country: None (occurrence: None)
  Receive Date: 20090224
  Receipt Date: 20090212
  Transmission Date: 20090719
  Serious: Yes (Death)
  Sender: FDA-Public Use
  Company Number: 200829895GPV

PATIENT
  Age: 72 Year

DRUGS (6)
  1. FLUDARABINE PHOSPHATE [Suspect]
     Indication: CHRONIC LYMPHOCYTIC LEUKAEMIA
     Dosage: 40 MG/M2, ORAL
     Route: 048
  2. CYCLOPHOSPHAMDE (CYCLOPHOSPHAMIDE) [Suspect]
     Dosage: 250 MG/M2, ORAL
     Route: 048
  3. CYCLOPHOSPHAMIDE [Concomitant]
  4. DOXORUBICIN HCL [Concomitant]
  5. VINCRISTINE [Concomitant]
  6. PREDNISONE TAB [Concomitant]

REACTIONS (4)
  - BONE MARROW TUMOUR CELL INFILTRATION [None]
  - CEREBROVASCULAR ACCIDENT [None]
  - DISEASE PROGRESSION [None]
  - PANCYTOPENIA [None]
